FAERS Safety Report 14963626 (Version 1)
Quarter: 2018Q2

REPORT INFORMATION
  Report Type: Spontaneous
  Country: US (occurrence: US)
  Receive Date: 20180601
  Receipt Date: 20180601
  Transmission Date: 20180711
  Serious: Yes (Death)
  Sender: FDA-Public Use
  Company Number: US-ROCHE-2132265

PATIENT
  Age: 51 Year
  Sex: Female
  Weight: 59.02 kg

DRUGS (1)
  1. XOLAIR [Suspect]
     Active Substance: OMALIZUMAB
     Indication: AUTOIMMUNE DISORDER
     Route: 065
     Dates: start: 2018

REACTIONS (6)
  - Arthralgia [Unknown]
  - Anaphylactic shock [Fatal]
  - Malaise [Unknown]
  - Vomiting [Unknown]
  - Blood sodium decreased [Unknown]
  - Body temperature increased [Unknown]

NARRATIVE: CASE EVENT DATE: 20180430
